FAERS Safety Report 5647918-X (Version None)
Quarter: 2008Q1

REPORT INFORMATION
  Report Type: 
  Country: None (occurrence: None)
  Receive Date: 20080228
  Receipt Date: 20080225
  Transmission Date: 20080703
  Serious: Yes (Death, Other)
  Sender: FDA-Public Use
  Company Number: 2008SU0020FU1

PATIENT
  Age: 81 Year
  Sex: Female

DRUGS (6)
  1. SULAR [Suspect]
     Indication: HYPERTENSION
     Dosage: 20 MG, PO
     Route: 048
     Dates: start: 20070914
  2. BENICAR 40 / 25MG [Concomitant]
  3. CARDURA [Concomitant]
  4. TOPROL 100 MG [Concomitant]
  5. LISINOPRIL [Concomitant]
  6. ZOCOR [Concomitant]

REACTIONS (2)
  - FEELING ABNORMAL [None]
  - MYOCARDIAL INFARCTION [None]
